FAERS Safety Report 8129354-X (Version None)
Quarter: 2012Q1

REPORT INFORMATION
  Report Type: 
  Country: None (occurrence: None)
  Receive Date: 20120210
  Receipt Date: 20120201
  Transmission Date: 20120608
  Serious: Yes (Hospitalization)
  Sender: FDA-Public Use
  Company Number: JP-MERCK-1107USA04022

PATIENT
  Age: 71 Year
  Sex: Male
  Weight: 67 kg

DRUGS (12)
  1. STANZOME [Concomitant]
     Route: 048
  2. CARNACULIN [Concomitant]
     Route: 048
  3. METHYCOBAL [Concomitant]
     Route: 065
  4. GLIMEPIRIDE [Concomitant]
     Route: 048
  5. JANUVIA [Suspect]
     Route: 048
     Dates: start: 20100202
  6. ACTOS [Concomitant]
     Route: 048
  7. JANUVIA [Suspect]
     Indication: BLOOD GLUCOSE ABNORMAL
     Route: 048
     Dates: end: 20110709
  8. CRESTOR [Concomitant]
     Route: 048
  9. CILOSTATE [Concomitant]
     Route: 048
  10. AMLODIPINE [Concomitant]
     Route: 048
  11. MINIPLANOR [Concomitant]
     Route: 048
  12. ALINAMIN F (FURSULTIAMINE HYDROCHLORIDE) [Concomitant]
     Route: 065

REACTIONS (2)
  - INTERSTITIAL LUNG DISEASE [None]
  - INAPPROPRIATE SCHEDULE OF DRUG ADMINISTRATION [None]
